FAERS Safety Report 8211168-3 (Version None)
Quarter: 2012Q1

REPORT INFORMATION
  Report Type: 
  Country: None (occurrence: None)
  Receive Date: 20120315
  Receipt Date: 20120305
  Transmission Date: 20120608
  Serious: Yes (Other)
  Sender: FDA-Public Use
  Company Number: US-JNJFOC-20120304052

PATIENT
  Sex: Female
  Weight: 58.97 kg

DRUGS (8)
  1. OXYCONTIN [Suspect]
     Indication: PAIN
     Route: 065
  2. DEXILANT [Concomitant]
     Indication: ULCER
     Route: 065
  3. DURAGESIC-100 [Suspect]
     Indication: SPINAL OSTEOARTHRITIS
     Route: 062
  4. DURAGESIC-100 [Suspect]
     Indication: SCOLIOSIS
     Route: 062
  5. FENTANYL [Suspect]
     Indication: PRODUCT USED FOR UNKNOWN INDICATION
     Route: 062
  6. OPANA [Concomitant]
     Route: 065
  7. FENTANYL-100 [Suspect]
     Indication: SPINAL OSTEOARTHRITIS
     Route: 062
  8. FENTANYL-100 [Suspect]
     Indication: SCOLIOSIS
     Route: 062

REACTIONS (7)
  - FATIGUE [None]
  - INTESTINAL OBSTRUCTION [None]
  - WRONG TECHNIQUE IN DRUG USAGE PROCESS [None]
  - INSOMNIA [None]
  - PAIN [None]
  - PRODUCT QUALITY ISSUE [None]
  - CONSTIPATION [None]
